FAERS Safety Report 9244688 (Version 2)
Quarter: 2013Q2

REPORT INFORMATION
  Report Type: Spontaneous
  Country: JP (occurrence: JP)
  Receive Date: 20130422
  Receipt Date: 20130607
  Transmission Date: 20140414
  Serious: Yes (Other)
  Sender: FDA-Public Use
  Company Number: JP-PFIZER INC-2013123733

PATIENT
  Age: 47 Year
  Sex: Female

DRUGS (4)
  1. LIPITOR [Suspect]
     Indication: LIPIDS ABNORMAL
     Dosage: 5 MG, 1X/DAY
     Route: 048
     Dates: start: 20121226, end: 20130301
  2. MYSLEE [Suspect]
     Indication: INSOMNIA
     Dosage: 5 MG, 1X/DAY
     Route: 048
     Dates: start: 20130128
  3. PERSANTIN [Suspect]
     Dosage: 100 MG, 1X/DAY
     Route: 048
  4. COBATHROW [Suspect]
     Dosage: 4 MG, 1X/DAY
     Route: 048

REACTIONS (3)
  - Blood potassium increased [Recovered/Resolved]
  - Sensation of heaviness [None]
  - Hypoaesthesia [None]
